FAERS Safety Report 5096167-5 (Version None)
Quarter: 2006Q3

REPORT INFORMATION
  Report Type: 
  Country: None (occurrence: None)
  Receive Date: 20060905
  Receipt Date: 20060614
  Transmission Date: 20061208
  Serious: Yes (Other)
  Sender: FDA-Public Use
  Company Number: US-ROCHE-452018

PATIENT
  Age: 67 Year
  Sex: Female
  Weight: 61.2 kg

DRUGS (1)
  1. BONIVA [Suspect]
     Indication: OSTEOPOROSIS
     Dosage: DOSING REGIMEN 3 MO
     Route: 048
     Dates: start: 20060610

REACTIONS (3)
  - MUSCULOSKELETAL CHEST PAIN [None]
  - NECK PAIN [None]
  - PAIN [None]
